FAERS Safety Report 4802036-5 (Version None)
Quarter: 2005Q4

REPORT INFORMATION
  Report Type: 
  Country: None (occurrence: None)
  Receive Date: 20051012
  Receipt Date: 20050930
  Transmission Date: 20060501
  Serious: Yes (Hospitalization, Other)
  Sender: FDA-Public Use
  Company Number: 2005136853

PATIENT
  Age: 77 Year
  Sex: Female

DRUGS (8)
  1. ATORVASTATIN CALCIUM [Suspect]
     Indication: BLOOD CHOLESTEROL INCREASED
     Dates: start: 20020101, end: 20020101
  2. ATENOLOL [Concomitant]
  3. TEVETEN [Concomitant]
  4. SYNTHROID [Concomitant]
  5. FOLIC ACID [Concomitant]
  6. VITAMIN C (VITAMIN C) [Concomitant]
  7. ZETIA (EXETIMIBE) [Concomitant]
  8. ZOCOR [Concomitant]

REACTIONS (4)
  - BLADDER DISORDER [None]
  - DEATH OF SPOUSE [None]
  - DRUG INEFFECTIVE [None]
  - SLEEP DISORDER [None]
